FAERS Safety Report 25047338 (Version 1)
Quarter: 2025Q1

REPORT INFORMATION
  Report Type: Spontaneous
  Country: CA (occurrence: CA)
  Receive Date: 20250306
  Receipt Date: 20250306
  Transmission Date: 20250408
  Serious: Yes (Death)
  Sender: PFIZER
  Company Number: CA-PFIZER INC-PV202500005177

PATIENT
  Age: 56 Year
  Sex: Male

DRUGS (4)
  1. MEKTOVI [Suspect]
     Active Substance: BINIMETINIB
     Indication: Metastatic malignant melanoma
     Dosage: 45 MG, 2X/DAY. CYCLE 2
     Route: 048
     Dates: start: 20250125
  2. MEKTOVI [Suspect]
     Active Substance: BINIMETINIB
     Indication: BRAF gene mutation
  3. BRAFTOVI [Suspect]
     Active Substance: ENCORAFENIB
     Indication: Metastatic malignant melanoma
     Dosage: 450 MG, 1X/DAY,  CYCLE 2
     Route: 048
     Dates: start: 20250125
  4. BRAFTOVI [Suspect]
     Active Substance: ENCORAFENIB
     Indication: BRAF gene mutation

REACTIONS (1)
  - Death [Fatal]

NARRATIVE: CASE EVENT DATE: 20250228
